FAERS Safety Report 9254739 (Version 2)
Quarter: 2013Q2

REPORT INFORMATION
  Report Type: Spontaneous
  Country: IT (occurrence: None)
  Receive Date: 20130422
  Receipt Date: 20130523
  Transmission Date: 20140414
  Serious: Yes (Hospitalization)
  Sender: FDA-Public Use
  Company Number: 2013CP000037

PATIENT
  Age: 43 Year
  Sex: Female

DRUGS (4)
  1. PERFALGAN (PARACETAMOL) [Suspect]
     Indication: PYREXIA
     Route: 042
     Dates: start: 20130108, end: 20130114
  2. VANCOMYCIN HCL [Concomitant]
  3. NADROPARIN CALCIUM [Concomitant]
  4. MERREM [Concomitant]

REACTIONS (3)
  - Neutropenia [None]
  - Rash [None]
  - White blood cell count decreased [None]
